FAERS Safety Report 8469379-8 (Version None)
Quarter: 2012Q2

REPORT INFORMATION
  Report Type: 
  Country: None (occurrence: None)
  Receive Date: 20120626
  Receipt Date: 20120614
  Transmission Date: 20120825
  Serious: No
  Sender: FDA-Public Use
  Company Number: US-ASTRAZENECA-2012SE39936

PATIENT
  Age: 47 Year
  Sex: Female

DRUGS (3)
  1. ALBUTEROL [Concomitant]
  2. ANTIBIOTICS [Concomitant]
  3. PULMICORT FLEXHALER [Suspect]
     Dosage: 360 BID
     Route: 055
     Dates: start: 20100101

REACTIONS (1)
  - TREATMENT NONCOMPLIANCE [None]
